FAERS Safety Report 24458486 (Version 1)
Quarter: 2024Q4

REPORT INFORMATION
  Report Type: Report from Study
  Country: US (occurrence: US)
  Receive Date: 20241018
  Receipt Date: 20241018
  Transmission Date: 20250115
  Serious: No
  Sender: ROCHE
  Company Number: US-ROCHE-3518673

PATIENT
  Age: 75 Year
  Sex: Female

DRUGS (9)
  1. RITUXAN [Suspect]
     Active Substance: RITUXIMAB
     Indication: Rheumatoid arthritis
     Dosage: THEN EVERY 26 WEEKS
     Route: 041
  2. TYLENOL [Concomitant]
     Active Substance: ACETAMINOPHEN
  3. VOLTAREN [Concomitant]
     Active Substance: DICLOFENAC SODIUM
  4. VITAMIN D3 [Concomitant]
     Active Substance: CHOLECALCIFEROL
  5. PLAQUENIL [Concomitant]
     Active Substance: HYDROXYCHLOROQUINE SULFATE
  6. COZAAR [Concomitant]
     Active Substance: LOSARTAN POTASSIUM
  7. MELATONIN [Concomitant]
     Active Substance: MELATONIN
  8. MOBIC [Concomitant]
     Active Substance: MELOXICAM
  9. RESTASIS [Concomitant]
     Active Substance: CYCLOSPORINE

REACTIONS (2)
  - Rheumatoid arthritis [Not Recovered/Not Resolved]
  - Off label use [Unknown]

NARRATIVE: CASE EVENT DATE: 20240201
